FAERS Safety Report 6373303-1 (Version None)
Quarter: 2009Q3

REPORT INFORMATION
  Report Type: 
  Country: None (occurrence: None)
  Receive Date: 20090924
  Receipt Date: 20090415
  Transmission Date: 20100115
  Serious: No
  Sender: FDA-Public Use
  Company Number: US-ASTRAZENECA-2009UW09505

PATIENT
  Age: 59 Year
  Sex: Male

DRUGS (16)
  1. SEROQUEL [Suspect]
     Indication: BIPOLAR I DISORDER
     Dosage: 50-300 MG
     Route: 048
  2. LEXAPRO [Concomitant]
  3. ABILIFY [Concomitant]
  4. PLAVIX [Concomitant]
  5. VERAPAMIL [Concomitant]
  6. ZETIA [Concomitant]
  7. CRESTOR [Concomitant]
  8. RISPERDAL [Concomitant]
  9. METFORMIN HCL [Concomitant]
  10. ALLOPURINOL [Concomitant]
  11. TOPAMAX [Concomitant]
  12. NEXIUM [Concomitant]
  13. ASPIRIN [Concomitant]
  14. MULTI-VITAMIN [Concomitant]
  15. FISH OIL [Concomitant]
  16. TESTOS [Concomitant]

REACTIONS (2)
  - FORMICATION [None]
  - INSOMNIA [None]
